FAERS Safety Report 14234791 (Version 1)
Quarter: 2017Q4

REPORT INFORMATION
  Report Type: Spontaneous
  Country: US (occurrence: US)
  Receive Date: 20171129
  Receipt Date: 20171129
  Transmission Date: 20180321
  Serious: No
  Sender: FDA-Public Use
  Company Number: US-JNJFOC-20171027849

PATIENT
  Age: 49 Year
  Sex: Female
  Weight: 83.92 kg

DRUGS (1)
  1. TYLENOL REGULAR STRENGTH [Suspect]
     Active Substance: ACETAMINOPHEN
     Indication: ARTHRALGIA
     Dosage: FOR ABOUT 2 MONTHS
     Route: 048
     Dates: end: 201710

REACTIONS (1)
  - Drug ineffective [Unknown]
